FAERS Safety Report 9128366 (Version 1)
Quarter: 2013Q1

REPORT INFORMATION
  Report Type: Spontaneous
  Country: US (occurrence: US)
  Receive Date: 20130228
  Receipt Date: 20130228
  Transmission Date: 20140127
  Serious: No
  Sender: FDA-Public Use
  Company Number: US-GLAXOSMITHKLINE-A0969571A

PATIENT
  Sex: Female

DRUGS (7)
  1. IMITREX [Suspect]
     Indication: PRODUCT USED FOR UNKNOWN INDICATION
  2. VYTORIN [Concomitant]
  3. NORVASC [Concomitant]
  4. METOPROLOL [Concomitant]
  5. NEXIUM [Concomitant]
  6. EXFORGE [Concomitant]
  7. LYRICA [Concomitant]

REACTIONS (1)
  - Drug hypersensitivity [Unknown]
